FAERS Safety Report 23553311 (Version 1)
Quarter: 2024Q1

REPORT INFORMATION
  Report Type: Spontaneous
  Country: US (occurrence: US)
  Receive Date: 20240222
  Receipt Date: 20240222
  Transmission Date: 20240409
  Serious: No
  Sender: FDA-Public Use
  Company Number: US-PFIZER INC-202400046449

PATIENT
  Sex: Male

DRUGS (6)
  1. VYNDAMAX [Interacting]
     Active Substance: TAFAMIDIS
     Dosage: UNK
  2. FUROSEMIDE [Interacting]
     Active Substance: FUROSEMIDE
     Dosage: UNK
  3. EPLERENONE [Interacting]
     Active Substance: EPLERENONE
     Dosage: UNK
  4. TORSEMIDE [Interacting]
     Active Substance: TORSEMIDE
     Dosage: UNK
  5. LISINOPRIL [Interacting]
     Active Substance: LISINOPRIL
     Dosage: UNK
  6. JARDIANCE [Interacting]
     Active Substance: EMPAGLIFLOZIN
     Dosage: UNK

REACTIONS (4)
  - Drug interaction [Unknown]
  - Rash pruritic [Unknown]
  - Cough [Unknown]
  - Fatigue [Unknown]
